FAERS Safety Report 21895432 (Version 5)
Quarter: 2023Q1

REPORT INFORMATION
  Report Type: Report from Study
  Country: ES (occurrence: ES)
  Receive Date: 20230123
  Receipt Date: 20230218
  Transmission Date: 20230417
  Serious: Yes (Other)
  Sender: FDA-Public Use
  Company Number: ES-ABBVIE-4277575

PATIENT
  Age: 80 Year
  Sex: Male

DRUGS (5)
  1. CARBIDOPA\LEVODOPA [Suspect]
     Active Substance: CARBIDOPA\LEVODOPA
     Indication: Parkinson^s disease
     Route: 050
     Dates: start: 20200206, end: 202301
  2. CARBIDOPA\LEVODOPA [Suspect]
     Active Substance: CARBIDOPA\LEVODOPA
     Dosage: INCREASE THE CONTINUOUS DOSE
     Route: 050
     Dates: start: 202301, end: 202301
  3. CARBIDOPA\LEVODOPA [Suspect]
     Active Substance: CARBIDOPA\LEVODOPA
     Dosage: CONTINUOUS DOSE ADJUSTMENT
     Route: 050
     Dates: start: 202301, end: 20230203
  4. CARBIDOPA\LEVODOPA [Suspect]
     Active Substance: CARBIDOPA\LEVODOPA
     Dosage: CONTINUOUS DOSE INCREASED?FIRST ADMIN DATE- FEB 2023
     Route: 050
  5. CARBIDOPA\LEVODOPA [Suspect]
     Active Substance: CARBIDOPA\LEVODOPA
     Dosage: INCREASE THE CONTINUOUS DOSE
     Route: 050
     Dates: start: 202301

REACTIONS (8)
  - Motor dysfunction [Recovered/Resolved]
  - On and off phenomenon [Recovered/Resolved]
  - Condition aggravated [Unknown]
  - Fall [Unknown]
  - Therapeutic product effect incomplete [Unknown]
  - Musculoskeletal disorder [Unknown]
  - Mobility decreased [Recovered/Resolved]
  - Gait inability [Unknown]

NARRATIVE: CASE EVENT DATE: 20221201
